FAERS Safety Report 10033951 (Version 1)
Quarter: 2014Q1

REPORT INFORMATION
  Report Type: Spontaneous
  Country: US (occurrence: None)
  Receive Date: 20140324
  Receipt Date: 20140324
  Transmission Date: 20141002
  Serious: Yes (Death, Hospitalization)
  Sender: FDA-Public Use
  Company Number: None

PATIENT
  Age: 88 Year
  Sex: Female
  Weight: 85 kg

DRUGS (9)
  1. XARELTO 15MG JANSSEN [Suspect]
     Indication: ATRIAL FIBRILLATION
     Dosage: APPROXIMATELY 3 MONTHS?1 TABS QD ORAL
     Route: 048
  2. CALCIUM [Concomitant]
  3. FUROSEMIDE [Concomitant]
  4. GABAPENTIN [Concomitant]
  5. LISINOPRIL [Concomitant]
  6. INSULIN [Concomitant]
  7. POTASIUM [Concomitant]
  8. SL NTG [Concomitant]
  9. SOLIFENACIN [Concomitant]

REACTIONS (3)
  - Subdural haematoma [None]
  - Fall [None]
  - Head injury [None]
